FAERS Safety Report 12358496 (Version 1)
Quarter: 2016Q2

REPORT INFORMATION
  Report Type: Spontaneous
  Country: US (occurrence: None)
  Receive Date: 20160511
  Receipt Date: 20160511
  Transmission Date: 20160815
  Serious: No
  Sender: FDA-Public Use
  Company Number: None

PATIENT
  Age: 78 Year
  Sex: Female
  Weight: 77.11 kg

DRUGS (6)
  1. LEVOTHYROXINE. [Concomitant]
     Active Substance: LEVOTHYROXINE
  2. ALEVE [Concomitant]
     Active Substance: NAPROXEN SODIUM
  3. THEOPHYLLINE ER [Suspect]
     Active Substance: THEOPHYLLINE ANHYDROUS
     Indication: DYSPNOEA
     Dosage: 2 PILLS TWICE DAILY BY MOUTH
     Route: 048
     Dates: start: 20160415, end: 20160416
  4. NEBULIZER [Concomitant]
     Active Substance: DEVICE
  5. RANITINE [Concomitant]
  6. ALBUTEROL. [Concomitant]
     Active Substance: ALBUTEROL

REACTIONS (10)
  - Anxiety [None]
  - Irritability [None]
  - Dizziness [None]
  - Tremor [None]
  - Restlessness [None]
  - Dyspnoea [None]
  - Heart rate irregular [None]
  - Insomnia [None]
  - Nausea [None]
  - Pollakiuria [None]

NARRATIVE: CASE EVENT DATE: 20160416
